FAERS Safety Report 20481513 (Version 1)
Quarter: 2022Q1

REPORT INFORMATION
  Report Type: Spontaneous
  Country: KR (occurrence: KR)
  Receive Date: 20220216
  Receipt Date: 20220216
  Transmission Date: 20220423
  Serious: Yes (Other)
  Sender: FDA-Public Use
  Company Number: KR-009507513-2202KOR003717

PATIENT
  Age: 33 Year
  Sex: Female
  Weight: 57.9 kg

DRUGS (2)
  1. PREVYMIS [Suspect]
     Active Substance: LETERMOVIR
     Indication: Antiviral prophylaxis
     Dosage: STRENGTH 240MG/12ML, ONCE DAILY
     Route: 042
     Dates: start: 20210907, end: 20211013
  2. PREVYMIS [Suspect]
     Active Substance: LETERMOVIR
     Indication: Antiviral prophylaxis
     Dosage: STRENGTH 240MG, ONCE DAILY
     Route: 048
     Dates: start: 20211014, end: 20211216

REACTIONS (1)
  - Haematochezia [Recovering/Resolving]

NARRATIVE: CASE EVENT DATE: 20220121
